FAERS Safety Report 11029038 (Version 3)
Quarter: 2016Q1

REPORT INFORMATION
  Report Type: Spontaneous
  Country: US (occurrence: US)
  Receive Date: 20150414
  Receipt Date: 20160112
  Transmission Date: 20160525
  Serious: Yes (Hospitalization)
  Sender: FDA-Public Use
  Company Number: US-ASTRAZENECA-2014SE63277

PATIENT
  Age: 722 Month
  Sex: Female
  Weight: 84.4 kg

DRUGS (21)
  1. SYMLINPEN [Interacting]
     Active Substance: PRAMLINTIDE ACETATE
     Indication: TYPE 2 DIABETES MELLITUS
     Dosage: 1 MG/2.7 ML 2 PEN PACK; 2.7 ML TWO TIMES A DAY
     Route: 058
     Dates: start: 2009
  2. SYMLINPEN [Interacting]
     Active Substance: PRAMLINTIDE ACETATE
     Indication: TYPE 2 DIABETES MELLITUS
     Route: 058
     Dates: start: 201002, end: 201003
  3. ALVESCO [Concomitant]
     Active Substance: CICLESONIDE
  4. FOLIC ACID. [Concomitant]
     Active Substance: FOLIC ACID
  5. SYMLINPEN [Suspect]
     Active Substance: PRAMLINTIDE ACETATE
     Indication: TYPE 2 DIABETES MELLITUS
     Route: 058
  6. SYMLINPEN [Interacting]
     Active Substance: PRAMLINTIDE ACETATE
     Indication: TYPE 2 DIABETES MELLITUS
     Route: 058
     Dates: start: 200912
  7. SYMLINPEN [Interacting]
     Active Substance: PRAMLINTIDE ACETATE
     Indication: TYPE 2 DIABETES MELLITUS
     Route: 058
     Dates: start: 201003, end: 201004
  8. HUMALOG [Concomitant]
     Active Substance: INSULIN LISPRO
     Indication: TYPE 2 DIABETES MELLITUS
     Dosage: 7-9 UNITS VASE ON SLIDING SCLAE INSULIN, TID, DECREASD TO 5 UNITS, TID, UPON RESTARTING SYMLIN
     Route: 058
  9. SYMLINPEN [Interacting]
     Active Substance: PRAMLINTIDE ACETATE
     Indication: TYPE 2 DIABETES MELLITUS
     Route: 058
     Dates: start: 201004, end: 201005
  10. SYMLINPEN [Interacting]
     Active Substance: PRAMLINTIDE ACETATE
     Indication: TYPE 2 DIABETES MELLITUS
     Route: 058
     Dates: start: 201005
  11. SYMLINPEN [Interacting]
     Active Substance: PRAMLINTIDE ACETATE
     Indication: TYPE 2 DIABETES MELLITUS
     Route: 058
     Dates: start: 201001
  12. LANTUS [Concomitant]
     Active Substance: INSULIN GLARGINE
     Indication: TYPE 2 DIABETES MELLITUS
     Dosage: 10 UNITS, AT NIGHT
     Route: 058
  13. LANTUS [Concomitant]
     Active Substance: INSULIN GLARGINE
     Indication: TYPE 2 DIABETES MELLITUS
     Dosage: 20 UNITS, BID
     Route: 058
  14. SYMLINPEN [Interacting]
     Active Substance: PRAMLINTIDE ACETATE
     Indication: TYPE 2 DIABETES MELLITUS
     Route: 058
     Dates: end: 201201
  15. ACARBOSE. [Interacting]
     Active Substance: ACARBOSE
     Route: 065
  16. HUMALOG [Concomitant]
     Active Substance: INSULIN LISPRO
     Indication: TYPE 2 DIABETES MELLITUS
     Dosage: 14 UNITS, BID
     Route: 058
  17. ALLEGRA [Concomitant]
     Active Substance: FEXOFENADINE HYDROCHLORIDE
  18. POTASSIUM [Concomitant]
     Active Substance: POTASSIUM
  19. SYMLINPEN [Interacting]
     Active Substance: PRAMLINTIDE ACETATE
     Indication: TYPE 2 DIABETES MELLITUS
     Route: 058
     Dates: start: 201203
  20. NORVASC [Concomitant]
     Active Substance: AMLODIPINE BESYLATE
  21. SYMLINPEN [Interacting]
     Active Substance: PRAMLINTIDE ACETATE
     Indication: TYPE 2 DIABETES MELLITUS
     Route: 058
     Dates: start: 201203

REACTIONS (25)
  - Drug interaction [Unknown]
  - Hypersensitivity [Unknown]
  - Tremor [Unknown]
  - Sneezing [Unknown]
  - Body height decreased [Unknown]
  - Nausea [Recovered/Resolved]
  - Hypertension [Unknown]
  - Blood glucose decreased [Unknown]
  - Weight decreased [Unknown]
  - Asthma [Unknown]
  - Hepatic enzyme increased [Unknown]
  - Fatigue [Not Recovered/Not Resolved]
  - Product quality issue [Unknown]
  - Pruritus [Unknown]
  - Erythema [Unknown]
  - Flatulence [Not Recovered/Not Resolved]
  - Weight increased [Not Recovered/Not Resolved]
  - Seasonal allergy [Unknown]
  - Feeling abnormal [Recovered/Resolved]
  - Abdominal pain upper [Not Recovered/Not Resolved]
  - Drug dose omission [Unknown]
  - Blood glucose increased [Recovered/Resolved]
  - Hyperglycaemia [Unknown]
  - Pain [Unknown]
  - Diarrhoea [Recovered/Resolved]

NARRATIVE: CASE EVENT DATE: 200901
